FAERS Safety Report 26191851 (Version 1)
Quarter: 2025Q4

REPORT INFORMATION
  Report Type: Spontaneous
  Country: US (occurrence: US)
  Receive Date: 20251223
  Receipt Date: 20251223
  Transmission Date: 20260118
  Serious: No
  Sender: VERTEX
  Company Number: US-VERTEX PHARMACEUTICALS-2025-021670

PATIENT
  Age: 72 Year
  Sex: Female

DRUGS (2)
  1. JOURNAVX [Suspect]
     Active Substance: SUZETRIGINE
     Indication: Pain
     Dosage: LOADING DOSE (2 X 50MG), SINGLE
     Route: 061
     Dates: start: 20251215, end: 20251215
  2. JOURNAVX [Suspect]
     Active Substance: SUZETRIGINE
     Dosage: 50MG
     Route: 061

REACTIONS (1)
  - Flushing [Not Recovered/Not Resolved]

NARRATIVE: CASE EVENT DATE: 20251216
